FAERS Safety Report 16972290 (Version 1)
Quarter: 2019Q4

REPORT INFORMATION
  Report Type: Spontaneous
  Country: IT (occurrence: IT)
  Receive Date: 20191029
  Receipt Date: 20191029
  Transmission Date: 20200122
  Serious: Yes (Other)
  Sender: FDA-Public Use
  Company Number: IT-NOVOPROD-691919

PATIENT
  Age: 6 Day
  Sex: Female
  Weight: 3.39 kg

DRUGS (1)
  1. TRESIBA [Suspect]
     Active Substance: INSULIN DEGLUDEC
     Indication: TYPE 1 DIABETES MELLITUS
     Dosage: UNK
     Route: 064

REACTIONS (4)
  - Hypoglycaemia neonatal [Unknown]
  - Cystic fibrosis [Unknown]
  - Foetal exposure during pregnancy [Recovered/Resolved]
  - Necrotising enterocolitis neonatal [Unknown]
